FAERS Safety Report 5342556-0 (Version None)
Quarter: 2007Q2

REPORT INFORMATION
  Report Type: 
  Country: None (occurrence: None)
  Receive Date: 20070416
  Receipt Date: 20070221
  Transmission Date: 20071010
  Serious: No
  Sender: FDA-Public Use
  Company Number: 2007SP000722

PATIENT
  Sex: Female
  Weight: 56.6996 kg

DRUGS (3)
  1. LUNESTA [Suspect]
     Indication: INSOMNIA
     Dosage: 3 MG; HS; ORAL
     Route: 048
     Dates: start: 20061201
  2. WELLBUTRIN [Suspect]
     Indication: DEPRESSION
     Dates: start: 20070101, end: 20070201
  3. ZOLOFT [Suspect]
     Indication: DEPRESSION
     Dates: start: 20061201, end: 20070101

REACTIONS (3)
  - ANXIETY [None]
  - DRUG EFFECT DECREASED [None]
  - PSYCHOMOTOR HYPERACTIVITY [None]
